FAERS Safety Report 5225969-7 (Version None)
Quarter: 2007Q1

REPORT INFORMATION
  Report Type: 
  Country: None (occurrence: None)
  Receive Date: 20070129
  Receipt Date: 20070116
  Transmission Date: 20070707
  Serious: Yes (Other)
  Sender: FDA-Public Use
  Company Number: 152032ISR

PATIENT
  Age: 50 Year
  Sex: Female

DRUGS (1)
  1. MELOXICAM [Suspect]
     Dosage: 7.5 MG (7.5 MG, 1 IN 1 D); ORAL
     Route: 048
     Dates: end: 20070101

REACTIONS (8)
  - COGNITIVE DISORDER [None]
  - CONFUSIONAL STATE [None]
  - DIZZINESS [None]
  - NAUSEA [None]
  - RASH [None]
  - SOMNOLENCE [None]
  - VISUAL DISTURBANCE [None]
  - VOMITING [None]
